FAERS Safety Report 6020425-0 (Version None)
Quarter: 2008Q4

REPORT INFORMATION
  Report Type: 
  Country: None (occurrence: None)
  Receive Date: 20081222
  Receipt Date: 20081218
  Transmission Date: 20090506
  Serious: Yes (Death, Hospitalization)
  Sender: FDA-Public Use
  Company Number: GRT 2008-13923

PATIENT
  Age: 67 Year
  Sex: Male

DRUGS (1)
  1. LIDOCAINE [Suspect]

REACTIONS (1)
  - RASH [None]
